FAERS Safety Report 23494268 (Version 4)
Quarter: 2024Q4

REPORT INFORMATION
  Report Type: Report from Study
  Country: US (occurrence: US)
  Receive Date: 20240207
  Receipt Date: 20241008
  Transmission Date: 20250115
  Serious: Yes (Other)
  Sender: OTSUKA
  Company Number: US-OTSUKA-2022_043342

PATIENT
  Age: 26 Year
  Sex: Female

DRUGS (3)
  1. TOLVAPTAN [Suspect]
     Active Substance: TOLVAPTAN
     Indication: Congenital cystic kidney disease
     Dosage: 60 MG, QD (IN MORNING)
     Route: 048
     Dates: start: 20190201
  2. TOLVAPTAN [Suspect]
     Active Substance: TOLVAPTAN
     Dosage: 30 MG, QD (IN EVENING)
     Route: 048
     Dates: start: 20190201
  3. TYLENOL [Concomitant]
     Active Substance: ACETAMINOPHEN
     Indication: Product used for unknown indication
     Dosage: 3 TO 4 TIMES A WEEK
     Route: 065

REACTIONS (16)
  - Sinus operation [Unknown]
  - Nasal polyps [Not Recovered/Not Resolved]
  - Aphonia [Not Recovered/Not Resolved]
  - Syncope [Unknown]
  - Loss of consciousness [Not Recovered/Not Resolved]
  - Postural orthostatic tachycardia syndrome [Unknown]
  - Nasal congestion [Recovering/Resolving]
  - Illness [Unknown]
  - Ear infection [Recovering/Resolving]
  - Hypoacusis [Recovering/Resolving]
  - Nasopharyngitis [Recovering/Resolving]
  - Haemoglobin decreased [Recovered/Resolved]
  - Malaise [Not Recovered/Not Resolved]
  - Polydipsia [Unknown]
  - Dehydration [Recovering/Resolving]
  - Dizziness [Not Recovered/Not Resolved]

NARRATIVE: CASE EVENT DATE: 20190901
